FAERS Safety Report 8871671 (Version 1)
Quarter: 2012Q4

REPORT INFORMATION
  Report Type: 
  Country: MX (occurrence: MX)
  Receive Date: 20121029
  Receipt Date: 20121029
  Transmission Date: 20130627
  Serious: Yes (Hospitalization, Other)
  Sender: FDA-Public Use
  Company Number: PHHY2012MX096163

PATIENT
  Age: 73 Year
  Sex: Female

DRUGS (5)
  1. ACLASTA [Suspect]
     Indication: OSTEOPOROTIC FRACTURE
     Dosage: 5 mg, yearly
     Route: 042
     Dates: start: 20110806
  2. INSULIN [Concomitant]
     Indication: DIABETES MELLITUS
     Dosage: 14 IU at morning,  4 IU in the afternoon  and  4 IU  at night
     Dates: start: 2000
  3. CINNARIZINE [Concomitant]
     Indication: HYPERTENSION
     Dosage: 1 DF, UNK
     Dates: start: 2011
  4. LEVOTHYROXINE [Concomitant]
     Indication: THYROID DISORDER
     Dosage: 1 DF, daily
     Dates: start: 1995
  5. COLCHICINE [Concomitant]
     Indication: HEPATIC CIRRHOSIS
     Dosage: 1 DF, daily
     Dates: start: 2008

REACTIONS (4)
  - Arrhythmia [Recovered/Resolved]
  - Fatigue [Recovered/Resolved]
  - Malaise [Recovered/Resolved]
  - Dyspnoea [Recovered/Resolved]
